FAERS Safety Report 14459631 (Version 2)
Quarter: 2020Q1

REPORT INFORMATION
  Report Type: Spontaneous
  Country: DE (occurrence: DE)
  Receive Date: 20180130
  Receipt Date: 20200131
  Transmission Date: 20200409
  Serious: Yes (Disabling, Other)
  Sender: FDA-Public Use
  Company Number: DE-MYLANLABS-2015M1027840

PATIENT
  Age: 37 Year
  Sex: Male
  Weight: 80 kg

DRUGS (2)
  1. LEVOFLOXACIN. [Suspect]
     Active Substance: LEVOFLOXACIN
     Indication: URINARY TRACT INFECTION
     Dosage: 500 MILLIGRAM, QD
     Route: 048
     Dates: start: 20150719, end: 20150720
  2. LEVOFLOXACIN. [Suspect]
     Active Substance: LEVOFLOXACIN
     Indication: URETHRITIS

REACTIONS (106)
  - Hyperhidrosis [Unknown]
  - Walking disability [Not Recovered/Not Resolved]
  - Erythema [Not Recovered/Not Resolved]
  - Encephalopathy [Unknown]
  - Mental fatigue [Not Recovered/Not Resolved]
  - Flatulence [Unknown]
  - Tendonitis [Not Recovered/Not Resolved]
  - Kyphosis [Unknown]
  - Pelvic deformity [Unknown]
  - Ocular icterus [Unknown]
  - Lip dry [Unknown]
  - Muscle atrophy [Unknown]
  - Fatigue [Not Recovered/Not Resolved]
  - Adjustment disorder with depressed mood [Unknown]
  - Panic attack [Unknown]
  - Cauda equina syndrome [Not Recovered/Not Resolved]
  - Diarrhoea [Recovering/Resolving]
  - Visual impairment [Recovered/Resolved]
  - Vision blurred [Recovered/Resolved]
  - Depression [Unknown]
  - Obsessive thoughts [Unknown]
  - Heart rate increased [Unknown]
  - Ubiquinone decreased [Not Recovered/Not Resolved]
  - Feeling abnormal [Recovered/Resolved]
  - Cardiac disorder [Unknown]
  - Muscle tightness [Unknown]
  - Peripheral vascular disorder [Unknown]
  - Urinary tract disorder [Unknown]
  - Enthesopathy [Unknown]
  - Restlessness [Unknown]
  - Dry mouth [Unknown]
  - Dysbiosis [Unknown]
  - Irritable bowel syndrome [Not Recovered/Not Resolved]
  - Myopathy [Not Recovered/Not Resolved]
  - Suicidal ideation [Unknown]
  - Gait disturbance [Recovering/Resolving]
  - Abdominal pain [Unknown]
  - Parosmia [Recovered/Resolved]
  - Nausea [Unknown]
  - Paraesthesia [Not Recovered/Not Resolved]
  - Intentional product misuse [Unknown]
  - Asthenia [Recovered/Resolved]
  - Tendon disorder [Unknown]
  - Decreased appetite [Unknown]
  - Intervertebral disc protrusion [Unknown]
  - Spinal pain [Not Recovered/Not Resolved]
  - Mental disorder [Unknown]
  - Movement disorder [Unknown]
  - Blood bilirubin increased [Recovering/Resolving]
  - Jaundice [Unknown]
  - Sleep disorder [Not Recovered/Not Resolved]
  - Joint noise [Unknown]
  - Tachycardia [Recovered/Resolved]
  - Arthralgia [Unknown]
  - Tendon pain [Recovered/Resolved]
  - Myalgia [Not Recovered/Not Resolved]
  - Pain [Unknown]
  - Arrhythmia [Unknown]
  - Fructose intolerance [Not Recovered/Not Resolved]
  - Copper deficiency [Not Recovered/Not Resolved]
  - Chronic fatigue syndrome [Not Recovered/Not Resolved]
  - Vitamin D deficiency [Not Recovered/Not Resolved]
  - Lipid metabolism disorder [Not Recovered/Not Resolved]
  - Stress [Unknown]
  - Hypoaesthesia [Unknown]
  - Disturbance in attention [Unknown]
  - Musculoskeletal stiffness [Unknown]
  - Hypersensitivity [Unknown]
  - Pain in extremity [Not Recovered/Not Resolved]
  - Pallor [Unknown]
  - Loss of personal independence in daily activities [Not Recovered/Not Resolved]
  - Cystitis [Unknown]
  - Immunodeficiency [Not Recovered/Not Resolved]
  - Apathy [Unknown]
  - Soft tissue disorder [Not Recovered/Not Resolved]
  - Tinnitus [Not Recovered/Not Resolved]
  - Back pain [Not Recovered/Not Resolved]
  - Infection [Unknown]
  - Gluten sensitivity [Not Recovered/Not Resolved]
  - Peripheral coldness [Unknown]
  - Nervous system disorder [Unknown]
  - Spondylolisthesis [Unknown]
  - Appetite disorder [Unknown]
  - Frequent bowel movements [Unknown]
  - Malaise [Recovered/Resolved]
  - Toxicity to various agents [Unknown]
  - Dry skin [Not Recovered/Not Resolved]
  - Facet joint syndrome [Unknown]
  - Tendon discomfort [Not Recovered/Not Resolved]
  - Motor dysfunction [Unknown]
  - Fibromyalgia [Unknown]
  - Fear of death [Unknown]
  - Pyrexia [Unknown]
  - Dizziness [Unknown]
  - Physical disability [Not Recovered/Not Resolved]
  - Swelling [Not Recovered/Not Resolved]
  - Tenosynovitis stenosans [Unknown]
  - Taste disorder [Unknown]
  - Dysstasia [Recovering/Resolving]
  - Tissue rupture [Not Recovered/Not Resolved]
  - Anxiety [Unknown]
  - Lordosis [Unknown]
  - Myofascial pain syndrome [Not Recovered/Not Resolved]
  - Food intolerance [Not Recovered/Not Resolved]
  - Sensory disturbance [Unknown]
  - Palpitations [Recovered/Resolved]

NARRATIVE: CASE EVENT DATE: 2015
